FAERS Safety Report 7907593-8 (Version None)
Quarter: 2011Q4

REPORT INFORMATION
  Report Type: 
  Country: None (occurrence: None)
  Receive Date: 20111110
  Receipt Date: 20111107
  Transmission Date: 20120403
  Serious: Yes (Death)
  Sender: FDA-Public Use
  Company Number: PHHY2011CA097521

PATIENT
  Sex: Female

DRUGS (7)
  1. ASPIRIN [Concomitant]
     Dosage: 80 MG, UNK
  2. CARBOCAL D [Concomitant]
     Dosage: UNK UKN, UNK
  3. ZOLEDRONOC ACID [Suspect]
     Dosage: UNK UKN, UNK
     Route: 042
     Dates: start: 20101221
  4. LIPITOR [Concomitant]
     Dosage: 40 MG, UNK
  5. DIOVAN [Concomitant]
     Dosage: 1 DF (160/145), UNK
  6. FERROUS SULFATE TAB [Concomitant]
     Dosage: 300 UKN, BID
  7. ZOLEDRONOC ACID [Suspect]
     Indication: OSTEOPOROSIS
     Dosage: 5 MG, UNK
     Route: 042
     Dates: start: 20090910

REACTIONS (1)
  - LUNG NEOPLASM MALIGNANT [None]
